FAERS Safety Report 6759338-5 (Version None)
Quarter: 2010Q2

REPORT INFORMATION
  Report Type: 
  Country: None (occurrence: None)
  Receive Date: 20100607
  Receipt Date: 20100531
  Transmission Date: 20101027
  Serious: Yes (Other)
  Sender: FDA-Public Use
  Company Number: JP-PFIZER INC-2010062201

PATIENT
  Age: 84 Year
  Sex: Male

DRUGS (2)
  1. ATARAX [Suspect]
     Dosage: 25 MG, 2X/DAY
     Route: 048
  2. AMIODARONE [Suspect]
     Dosage: UNK

REACTIONS (2)
  - BLOOD PRESSURE INCREASED [None]
  - HEPATIC FUNCTION ABNORMAL [None]
